FAERS Safety Report 17717999 (Version 5)
Quarter: 2022Q2

REPORT INFORMATION
  Report Type: Spontaneous
  Country: CA (occurrence: CA)
  Receive Date: 20200428
  Receipt Date: 20220623
  Transmission Date: 20220720
  Serious: Yes (Hospitalization, Other)
  Sender: FDA-Public Use
  Company Number: CA-SAMSUNG BIOEPIS-SB-2020-14467

PATIENT
  Age: 66 Year
  Sex: Male
  Weight: 82 kg

DRUGS (7)
  1. INFLIXIMAB [Suspect]
     Active Substance: INFLIXIMAB
     Indication: Colitis ulcerative
     Route: 042
  2. ASPIRIN [Concomitant]
     Active Substance: ASPIRIN
     Indication: Pain
     Dosage: UNKNOWN
     Route: 065
  3. DESOXIMETASONE [Concomitant]
     Active Substance: DESOXIMETASONE
     Indication: Product used for unknown indication
     Route: 065
  4. HYDROCORTISONE [Concomitant]
     Active Substance: HYDROCORTISONE
     Indication: Premedication
     Route: 065
  5. HYDROCORTISONE [Concomitant]
     Active Substance: HYDROCORTISONE
     Route: 065
  6. SULFASALAZINE [Concomitant]
     Active Substance: SULFASALAZINE
     Indication: Product used for unknown indication
     Route: 065
  7. SULFASALAZINE [Concomitant]
     Active Substance: SULFASALAZINE
     Indication: Product used for unknown indication
     Route: 048

REACTIONS (17)
  - Blood pressure fluctuation [Recovered/Resolved]
  - Condition aggravated [Recovered/Resolved]
  - Hip fracture [Recovered/Resolved]
  - Infusion site erythema [Recovered/Resolved]
  - Infusion site extravasation [Recovered/Resolved]
  - Infusion site pain [Recovered/Resolved]
  - Large intestinal stenosis [Recovered/Resolved]
  - Large intestine polyp [Recovered/Resolved]
  - Post-traumatic pain [Recovered/Resolved]
  - Road traffic accident [Recovered/Resolved]
  - Weight decreased [Recovered/Resolved]
  - COVID-19 [Recovered/Resolved]
  - Infrequent bowel movements [Recovered/Resolved]
  - Drug ineffective [Recovered/Resolved]
  - Incorrect dose administered [Recovered/Resolved]
  - Inappropriate schedule of product administration [Recovered/Resolved]
  - Off label use [Recovered/Resolved]
